FAERS Safety Report 8890295 (Version 1)
Quarter: 2012Q4

REPORT INFORMATION
  Report Type: 
  Country: CA (occurrence: CA)
  Receive Date: 20121106
  Receipt Date: 20121106
  Transmission Date: 20130627
  Serious: Yes (Other)
  Sender: FDA-Public Use
  Company Number: PHMT2006CA01604

PATIENT
  Sex: Female

DRUGS (15)
  1. SANDOSTATIN LAR [Suspect]
     Indication: PITUITARY TUMOUR
     Dosage: 20 mg, every 4 weeks
     Dates: start: 20000501
  2. CELEXA [Concomitant]
     Dosage: 20 mg, QD
     Route: 048
  3. DETROL [Concomitant]
  4. DIOVAN (BP) [Concomitant]
     Dosage: 160 mg, QD
     Route: 048
  5. FLEXERIL [Concomitant]
     Dosage: 1/2 tab qhs
     Route: 048
  6. HYDROMORPHONE [Concomitant]
     Dosage: 2 mg po q 4-6 hr prn
     Route: 048
  7. LASIX [Concomitant]
  8. PARIET (STOMACH) [Concomitant]
     Dosage: 10 mg, QD
     Route: 048
  9. RATIO-MPA (PROVERA) [Concomitant]
     Dosage: 1 tab po 2.5 mg po qd
     Route: 048
  10. STEMETIL [Concomitant]
     Dosage: 5 mg, PRN
     Route: 048
  11. SYNTHROID [Concomitant]
     Dosage: 0.2 mg, QD
     Route: 048
  12. VOLTAREN RAPID [Concomitant]
     Dosage: 50 mg, TID
     Route: 048
  13. XENICAL (STOOL SOFTENER) [Concomitant]
     Dosage: 120 mg, TID
     Route: 048
  14. XATRAL [Concomitant]
  15. APO-FUROSEMIDE [Concomitant]
     Dosage: 40 mg po qd ? tab per day
     Route: 048

REACTIONS (14)
  - Urinary incontinence [Unknown]
  - Hepatitis [Unknown]
  - Extrasystoles [Unknown]
  - Arrhythmia [Unknown]
  - Arthralgia [Unknown]
  - Heart rate decreased [Unknown]
  - Hyperglycaemia [Unknown]
  - Weight decreased [Unknown]
  - Blood pressure increased [Unknown]
  - Depression [Unknown]
  - Mood altered [Unknown]
  - Hypoglycaemia [Unknown]
  - Nausea [Unknown]
  - Diarrhoea [Unknown]
